FAERS Safety Report 18470783 (Version 2)
Quarter: 2020Q4

REPORT INFORMATION
  Report Type: Spontaneous
  Country: DE (occurrence: DE)
  Receive Date: 20201106
  Receipt Date: 20201110
  Transmission Date: 20210114
  Serious: Yes (Other)
  Sender: FDA-Public Use
  Company Number: DE-B.I. PHARMACEUTICALS,INC./RIDGEFIELD-2020-BI-058556

PATIENT
  Sex: Male

DRUGS (2)
  1. SIFROL [Suspect]
     Active Substance: PRAMIPEXOLE
     Indication: PARKINSON^S DISEASE
     Dosage: 2.62 MG/DAY
  2. SIFROL [Suspect]
     Active Substance: PRAMIPEXOLE
     Dosage: 3.15 MG/DAY

REACTIONS (5)
  - Somnolence [Unknown]
  - Therapeutic response decreased [Unknown]
  - Vestibular disorder [Unknown]
  - Colitis ulcerative [Unknown]
  - Sleep attacks [Unknown]
